FAERS Safety Report 6429359-0 (Version None)
Quarter: 2009Q4

REPORT INFORMATION
  Report Type: 
  Country: None (occurrence: None)
  Receive Date: 20091105
  Receipt Date: 20090520
  Transmission Date: 20100525
  Serious: Yes (Hospitalization)
  Sender: FDA-Public Use
  Company Number: US-ABBOTT-09P-163-0574656-00

PATIENT
  Sex: Male
  Weight: 100 kg

DRUGS (1)
  1. KALETRA [Suspect]
     Indication: HIV INFECTION
     Route: 048

REACTIONS (1)
  - HYPERGLYCAEMIA [None]
